FAERS Safety Report 4757224-3 (Version None)
Quarter: 2005Q3

REPORT INFORMATION
  Report Type: 
  Country: None (occurrence: None)
  Receive Date: 20050829
  Receipt Date: 20050816
  Transmission Date: 20060218
  Serious: Yes (Death, Other)
  Sender: FDA-Public Use
  Company Number: 2005-BP-14153RO

PATIENT
  Age: 83 Year
  Sex: Female

DRUGS (3)
  1. METHOTREXATE [Suspect]
     Indication: RHEUMATOID ARTHRITIS
     Dosage: 5 MG/WEEK (1 IN 1 WK)
     Dates: start: 19871201, end: 19901201
  2. INDOMETHACIN [Concomitant]
  3. DETROPROPOXYPHEN (DEXTROPROPOXYPHENE) [Concomitant]

REACTIONS (2)
  - ACUTE MYELOID LEUKAEMIA [None]
  - HAEMOGLOBIN DECREASED [None]
